FAERS Safety Report 19785075 (Version 1)
Quarter: 2021Q3

REPORT INFORMATION
  Report Type: Spontaneous
  Country: US (occurrence: US)
  Receive Date: 20210903
  Receipt Date: 20210903
  Transmission Date: 20211014
  Serious: Yes (Other)
  Sender: FDA-Public Use
  Company Number: US-GLAXOSMITHKLINE-US2021GSK185862

PATIENT
  Sex: Male

DRUGS (6)
  1. ZANTAC [Suspect]
     Active Substance: RANITIDINE HYDROCHLORIDE
     Indication: INTESTINAL ULCER
     Dosage: 150 MG, TWICE DAILY
     Route: 065
     Dates: start: 198001, end: 201901
  2. ZANTAC [Suspect]
     Active Substance: RANITIDINE HYDROCHLORIDE
     Dosage: 300 MG, TWICE DAILY
     Route: 065
     Dates: start: 198001, end: 201901
  3. RANITIDINE HYDROCHLORIDE. [Suspect]
     Active Substance: RANITIDINE HYDROCHLORIDE
     Indication: INTESTINAL ULCER
     Dosage: 150 MG, QD
     Route: 065
     Dates: start: 198001, end: 201901
  4. ZANTAC [Suspect]
     Active Substance: RANITIDINE HYDROCHLORIDE
     Dosage: 300 MG, TWICE DAILY
     Route: 065
     Dates: start: 198001, end: 201901
  5. RANITIDINE HYDROCHLORIDE. [Suspect]
     Active Substance: RANITIDINE HYDROCHLORIDE
     Indication: INTESTINAL ULCER
     Dosage: 150 MG, QD
     Route: 065
     Dates: start: 198001, end: 201901
  6. ZANTAC [Suspect]
     Active Substance: RANITIDINE HYDROCHLORIDE
     Indication: INTESTINAL ULCER
     Dosage: 150 MG, TWICE DAILY
     Route: 065
     Dates: start: 198001, end: 201901

REACTIONS (4)
  - Prostate cancer [Unknown]
  - Testis cancer [Unknown]
  - Colorectal cancer [Unknown]
  - Bladder cancer [Unknown]
